FAERS Safety Report 25278291 (Version 1)
Quarter: 2025Q2

REPORT INFORMATION
  Report Type: Spontaneous
  Country: US (occurrence: US)
  Receive Date: 20250507
  Receipt Date: 20250507
  Transmission Date: 20250717
  Serious: Yes (Other)
  Sender: BAYER HEALTHCARE PHARMACEUTICALS INC.
  Company Number: US-BAYER-2025A059274

PATIENT
  Sex: Female

DRUGS (3)
  1. ADEMPAS [Suspect]
     Active Substance: RIOCIGUAT
  2. WINREVAIR [Concomitant]
     Active Substance: SOTATERCEPT-CSRK
  3. WINREVAIR [Concomitant]
     Active Substance: SOTATERCEPT-CSRK

REACTIONS (7)
  - Ascites [None]
  - Dyspnoea exertional [None]
  - Oedema [None]
  - Vomiting [None]
  - Diarrhoea [None]
  - Cough [None]
  - Incorrect product administration duration [None]
